FAERS Safety Report 21629111 (Version 5)
Quarter: 2023Q1

REPORT INFORMATION
  Report Type: Report from Study
  Country: FR (occurrence: FR)
  Receive Date: 20221122
  Receipt Date: 20230316
  Transmission Date: 20230418
  Serious: Yes (Death, Hospitalization)
  Sender: FDA-Public Use
  Company Number: FR-JNJFOC-20221136482

PATIENT
  Age: 65 Year
  Sex: Male
  Weight: 58 kg

DRUGS (1)
  1. TECLISTAMAB [Suspect]
     Active Substance: TECLISTAMAB
     Indication: Plasma cell myeloma refractory
     Dosage: MED. KIT. NO. 705742,705743,705753,705754
     Route: 058
     Dates: start: 20220314, end: 20221018

REACTIONS (1)
  - Enterobacter pneumonia [Fatal]

NARRATIVE: CASE EVENT DATE: 20221115
